FAERS Safety Report 10583622 (Version 2)
Quarter: 2014Q4

REPORT INFORMATION
  Report Type: Report from Study
  Country: CN (occurrence: CN)
  Receive Date: 20141114
  Receipt Date: 20141210
  Transmission Date: 20150529
  Serious: Yes (Death, Other)
  Sender: FDA-Public Use
  Company Number: PHHY2014CN148166

PATIENT
  Age: 61 Year
  Sex: Female

DRUGS (3)
  1. GLIVEC [Suspect]
     Active Substance: IMATINIB MESYLATE
     Indication: ACUTE LYMPHOCYTIC LEUKAEMIA
     Dosage: 400 MG, QD
     Route: 048
     Dates: start: 201311
  2. GLIVEC [Suspect]
     Active Substance: IMATINIB MESYLATE
     Dosage: 600 MG, QD
     Route: 048
     Dates: start: 201405, end: 201407
  3. DASATINIB [Suspect]
     Active Substance: DASATINIB
     Indication: ACUTE LYMPHOCYTIC LEUKAEMIA
     Route: 065

REACTIONS (6)
  - Post procedural complication [Unknown]
  - Leukaemia recurrent [Unknown]
  - Acute lymphocytic leukaemia [Unknown]
  - No therapeutic response [Unknown]
  - Fungal infection [Unknown]
  - Septic shock [Fatal]

NARRATIVE: CASE EVENT DATE: 201405
